FAERS Safety Report 7487112-3 (Version None)
Quarter: 2011Q2

REPORT INFORMATION
  Report Type: 
  Country: None (occurrence: None)
  Receive Date: 20110510
  Receipt Date: 20110427
  Transmission Date: 20111010
  Serious: Yes (Death, Hospitalization)
  Sender: FDA-Public Use
  Company Number: TRP_07702_2011

PATIENT
  Age: 45 Year
  Sex: Male

DRUGS (2)
  1. AMPHOTERICIN B [Suspect]
     Indication: MENINGITIS COCCIDIOIDES
     Dosage: (350 MG QD INTRAVENOUS)
     Route: 042
     Dates: start: 20020424, end: 20020430
  2. FLUCONAZOLE [Suspect]
     Indication: MENINGITIS COCCIDIOIDES
     Dosage: (400 MG, 400 MG DAILY)
     Dates: start: 20020401, end: 20020401

REACTIONS (5)
  - RENAL FAILURE [None]
  - ACUTE RESPIRATORY DISTRESS SYNDROME [None]
  - HYPOTENSION [None]
  - COCCIDIOIDOMYCOSIS [None]
  - NEPHROPATHY TOXIC [None]
